FAERS Safety Report 26194411 (Version 1)
Quarter: 2025Q4

REPORT INFORMATION
  Report Type: Spontaneous
  Country: US (occurrence: US)
  Receive Date: 20251224
  Receipt Date: 20251224
  Transmission Date: 20260117
  Serious: No
  Sender: Kenvue
  Company Number: US-KENVUE-20251109171

PATIENT
  Sex: Female

DRUGS (12)
  1. TYLENOL [Suspect]
     Active Substance: ACETAMINOPHEN
     Indication: Infusion site pain
     Dosage: 1000 MILLIGRAM
     Route: 065
  2. REMODULIN [Concomitant]
     Active Substance: TREPROSTINIL
     Indication: Pulmonary arterial hypertension
     Dosage: CONCENTRATION 10.0 MG/ML
  3. REMODULIN [Concomitant]
     Active Substance: TREPROSTINIL
     Dosage: 0.02105 ?G/KG, CONTINUOUS VIA SUBCUTANEOUS (SQ) ROUTE
  4. REMODULIN [Concomitant]
     Active Substance: TREPROSTINIL
     Dosage: 0.02281 MICROGRAM/KILOGRAM
  5. REMODULIN [Concomitant]
     Active Substance: TREPROSTINIL
     Dosage: 0.03333 ?G/KG (INFUSION RATE OF 19, VIAL VOLUME OF 1.9)
  6. OPSUMIT [Concomitant]
     Active Substance: MACITENTAN
     Indication: Product used for unknown indication
     Route: 065
  7. SILDENAFIL [Concomitant]
     Active Substance: SILDENAFIL
     Indication: Product used for unknown indication
     Route: 065
  8. WINREVAIR [Concomitant]
     Active Substance: SOTATERCEPT-CSRK
     Indication: Product used for unknown indication
     Dosage: WINREVAIR MAINTENANCE DOSING ON AN UNREPORTED DATE IN OCT 2024
     Route: 065
  9. UPTRAVI [Concomitant]
     Active Substance: SELEXIPAG
     Indication: Product used for unknown indication
     Dosage: UNK
     Route: 065
  10. AUGMENTIN [Concomitant]
     Active Substance: AMOXICILLIN\CLAVULANATE POTASSIUM
     Indication: Infusion site infection
     Dosage: UNK
     Route: 065
  11. TRIAMCINOLONE ACETONIDE [Concomitant]
     Active Substance: TRIAMCINOLONE ACETONIDE
     Indication: Product used for unknown indication
     Route: 065
  12. LIDOCAINE\PRILOCAINE [Concomitant]
     Active Substance: LIDOCAINE\PRILOCAINE
     Indication: Product used for unknown indication
     Route: 065

REACTIONS (1)
  - Drug ineffective [Unknown]

NARRATIVE: CASE EVENT DATE: 20250101
